FAERS Safety Report 7220045-6 (Version None)
Quarter: 2011Q1

REPORT INFORMATION
  Report Type: 
  Country: None (occurrence: None)
  Receive Date: 20110111
  Receipt Date: 20110107
  Transmission Date: 20110831
  Serious: Yes (Other)
  Sender: FDA-Public Use
  Company Number: A0883645A

PATIENT
  Age: 17 Year
  Sex: Female

DRUGS (4)
  1. ZIAGEN [Suspect]
     Indication: ANTIVIRAL TREATMENT
     Dosage: 600MGD PER DAY
     Route: 048
     Dates: start: 20051110
  2. KALETRA [Suspect]
     Indication: ANTIVIRAL TREATMENT
     Route: 048
     Dates: start: 20051110
  3. INTELENCE [Suspect]
     Indication: ANTIVIRAL TREATMENT
     Dosage: 400MGD PER DAY
     Route: 048
     Dates: start: 20100525, end: 20100525
  4. EPIVIR [Suspect]
     Indication: ANTIVIRAL TREATMENT
     Dosage: 300MGD PER DAY
     Route: 048
     Dates: start: 20051110

REACTIONS (2)
  - ABORTION INDUCED [None]
  - DRUG EXPOSURE DURING PREGNANCY [None]
